FAERS Safety Report 9951166 (Version 2)
Quarter: 2014Q1

REPORT INFORMATION
  Report Type: Spontaneous
  Country: US (occurrence: US)
  Receive Date: 20140304
  Receipt Date: 20140304
  Transmission Date: 20141002
  Serious: No
  Sender: FDA-Public Use
  Company Number: US-AMGEN-USASP2013079721

PATIENT
  Sex: Female

DRUGS (1)
  1. ENBREL [Suspect]
     Indication: RHEUMATOID ARTHRITIS
     Dosage: UNK
     Route: 065

REACTIONS (11)
  - Headache [Unknown]
  - Malaise [Unknown]
  - Nausea [Unknown]
  - Fibromyalgia [Unknown]
  - Poor quality sleep [Unknown]
  - Sinus disorder [Unknown]
  - Infection [Unknown]
  - Injection site rash [Unknown]
  - Injection site swelling [Unknown]
  - Injection site pruritus [Unknown]
  - Injection site bruising [Unknown]
